FAERS Safety Report 16095885 (Version 1)
Quarter: 2019Q1

REPORT INFORMATION
  Report Type: Spontaneous
  Country: US (occurrence: US)
  Receive Date: 20190320
  Receipt Date: 20190320
  Transmission Date: 20190418
  Serious: No
  Sender: FDA-Public Use
  Company Number: US-SA-2019SA064790

PATIENT

DRUGS (2)
  1. IMOGAM RABIES-HT [Suspect]
     Active Substance: HUMAN RABIES VIRUS IMMUNE GLOBULIN
     Dosage: 1636 IU
     Route: 065
  2. IMOGAM RABIES-HT [Suspect]
     Active Substance: HUMAN RABIES VIRUS IMMUNE GLOBULIN
     Indication: IMMUNISATION
     Dosage: 1650 IU
     Route: 065

REACTIONS (1)
  - Extra dose administered [Unknown]
